FAERS Safety Report 8511349-5 (Version None)
Quarter: 2012Q3

REPORT INFORMATION
  Report Type: 
  Country: None (occurrence: None)
  Receive Date: 20120716
  Receipt Date: 20120707
  Transmission Date: 20120928
  Serious: Yes (Hospitalization, Other)
  Sender: FDA-Public Use
  Company Number: US-ASTELLAS-2012US006077

PATIENT
  Sex: Male

DRUGS (1)
  1. TACROLIMUS [Suspect]
     Indication: DERMATITIS ATOPIC
     Dosage: 0.1 %, UNKNOWN/D
     Route: 061
     Dates: start: 20000901

REACTIONS (3)
  - OFF LABEL USE [None]
  - RED BLOOD CELLS URINE [None]
  - CONVULSION [None]
